FAERS Safety Report 16535727 (Version 1)
Quarter: 2019Q3

REPORT INFORMATION
  Report Type: Spontaneous
  Country: CA (occurrence: CA)
  Receive Date: 20190705
  Receipt Date: 20190705
  Transmission Date: 20191004
  Serious: Yes (Other)
  Sender: FDA-Public Use
  Company Number: CA-TEVA-2019-CA-1072030

PATIENT
  Sex: Female

DRUGS (3)
  1. MONUROL [Interacting]
     Active Substance: FOSFOMYCIN TROMETHAMINE
     Indication: CYSTITIS
     Route: 048
  2. VALSARTAN. [Suspect]
     Active Substance: VALSARTAN
     Indication: PRODUCT USED FOR UNKNOWN INDICATION
     Dosage: 80 MILLIGRAM DAILY;
     Route: 065
  3. DIOVAN HCT [Interacting]
     Active Substance: HYDROCHLOROTHIAZIDE\VALSARTAN
     Indication: PRODUCT USED FOR UNKNOWN INDICATION
     Dosage: 1 DOSAGE FORMS DAILY;
     Route: 065

REACTIONS (3)
  - Incoherent [Recovered/Resolved]
  - Drug interaction [Recovered/Resolved]
  - Slow speech [Recovered/Resolved]
